FAERS Safety Report 9641562 (Version 2)
Quarter: 2013Q4

REPORT INFORMATION
  Report Type: Report from Study
  Country: US (occurrence: US)
  Receive Date: 20131023
  Receipt Date: 20131023
  Transmission Date: 20140711
  Serious: Yes (Hospitalization)
  Sender: FDA-Public Use
  Company Number: US-UCBSA-8047033

PATIENT
  Age: 33 Year
  Sex: Female
  Weight: 63.1 kg

DRUGS (5)
  1. CDP870 [Suspect]
     Indication: CROHN^S DISEASE
     Route: 058
     Dates: start: 20080829
  2. LUNESTA [Concomitant]
     Indication: INSOMNIA
     Dosage: DOSE FREQ.: DAILY
     Route: 048
     Dates: start: 20080911
  3. LEXAPRO [Concomitant]
     Indication: ANXIETY
     Dosage: DOSE FREQ.: DAILY
     Route: 048
     Dates: start: 20080911
  4. DEPO PROVERA [Concomitant]
     Indication: CONTRACEPTION
     Dosage: Q 3 MONTHS
     Route: 030
     Dates: start: 2006
  5. PENTASA [Concomitant]
     Indication: CROHN^S DISEASE
     Route: 048
     Dates: start: 200507

REACTIONS (1)
  - Oesophageal perforation [Recovered/Resolved]
